FAERS Safety Report 10270095 (Version 2)
Quarter: 2014Q2

REPORT INFORMATION
  Report Type: Spontaneous
  Country: GB (occurrence: None)
  Receive Date: 20140626
  Receipt Date: 20140630
  Transmission Date: 20141212
  Serious: Yes (Other)
  Sender: FDA-Public Use
  Company Number: AUR-APL-2014-06665

PATIENT
  Age: 42 Year
  Sex: Female
  Weight: 130 kg

DRUGS (12)
  1. QUETIAPINE [Suspect]
     Indication: PRODUCT USED FOR UNKNOWN INDICATION
     Dosage: 125MG IN THE MORNING AND 175MG IN THE EVENING
     Route: 048
  2. RISPERIDONE [Suspect]
     Indication: PRODUCT USED FOR UNKNOWN INDICATION
     Route: 048
  3. LORAZEPAM (LORAZEPAM) [Suspect]
     Indication: PRODUCT USED FOR UNKNOWN INDICATION
     Route: 048
  4. ZOPICLONE (ZOPICLONE) [Suspect]
     Indication: PRODUCT USED FOR UNKNOWN INDICATION
     Route: 048
  5. FOLIC ACID (FOLIC ACID) [Concomitant]
  6. LEVOTHYROXINE (LEVOTHYROXINE) [Concomitant]
  7. LITHIUM (LITHIUM) [Concomitant]
  8. MIRTAZAPINE (MIRTAZAPINE) [Concomitant]
  9. ORLISTAT (ORLISTAT) [Concomitant]
  10. PROCYCIYDINE (PROCYCLIDINE) [Concomitant]
  11. RAMIPRIL (RAMIPRIL) [Concomitant]
  12. VENLAFAXINE (VENLAFAXINE) [Concomitant]

REACTIONS (4)
  - Sleep apnoea syndrome [None]
  - Multiple drug therapy [None]
  - Mental disorder [None]
  - Condition aggravated [None]
